FAERS Safety Report 24024633 (Version 4)
Quarter: 2024Q3

REPORT INFORMATION
  Report Type: Report from Study
  Country: KR (occurrence: KR)
  Receive Date: 20240628
  Receipt Date: 20240710
  Transmission Date: 20241017
  Serious: No
  Sender: ROCHE
  Company Number: KR-ROCHE-3527061

PATIENT
  Age: 61 Year

DRUGS (4)
  1. ALECTINIB [Suspect]
     Active Substance: ALECTINIB
     Indication: Colon cancer
     Dosage: MOST RECENT DOSE RECEIVED ON 20/MAR/2024
     Route: 048
     Dates: start: 20240125, end: 20240221
  2. ALECTINIB [Suspect]
     Active Substance: ALECTINIB
     Route: 048
     Dates: start: 20240222, end: 20240320
  3. ALECTINIB [Suspect]
     Active Substance: ALECTINIB
     Route: 048
     Dates: start: 20240321
  4. LOPMIN [Concomitant]
     Route: 065

REACTIONS (3)
  - Herpes zoster [Recovered/Resolved]
  - Anaemia [Not Recovered/Not Resolved]
  - Diarrhoea [Not Recovered/Not Resolved]

NARRATIVE: CASE EVENT DATE: 20240222
